FAERS Safety Report 7539687-3 (Version None)
Quarter: 2011Q2

REPORT INFORMATION
  Report Type: 
  Country: None (occurrence: None)
  Receive Date: 20110610
  Receipt Date: 20110608
  Transmission Date: 20111010
  Serious: Yes (Death, Hospitalization, Other)
  Sender: FDA-Public Use
  Company Number: BR-ABBOTT-11P-020-0729814-00

PATIENT
  Sex: Female
  Weight: 34 kg

DRUGS (3)
  1. NITROIMIDAZOLE [Concomitant]
     Indication: CROHN'S DISEASE
     Route: 048
  2. HUMIRA [Suspect]
     Indication: CROHN'S DISEASE
     Route: 058
     Dates: start: 20110127, end: 20110528
  3. AZULFIN [Concomitant]
     Indication: CROHN'S DISEASE
     Route: 048

REACTIONS (9)
  - RESPIRATORY DISORDER [None]
  - DRUG INEFFECTIVE [None]
  - VOMITING [None]
  - CROHN'S DISEASE [None]
  - SEPSIS [None]
  - ASTHENIA [None]
  - ABDOMINAL PAIN [None]
  - GASTRITIS [None]
  - MALNUTRITION [None]
